FAERS Safety Report 8521683-0 (Version None)
Quarter: 2012Q3

REPORT INFORMATION
  Report Type: 
  Country: None (occurrence: None)
  Receive Date: 20120719
  Receipt Date: 20120718
  Transmission Date: 20120928
  Serious: Yes (Hospitalization)
  Sender: FDA-Public Use
  Company Number: PHHY2012CH061463

PATIENT
  Age: 72 Year
  Sex: Female

DRUGS (2)
  1. DALMADORM [Concomitant]
     Indication: INSOMNIA
     Dosage: 15 MG, DAILY
     Route: 048
  2. TEGRETOL [Suspect]
     Indication: PAIN
     Dosage: 400 MG, DAILY
     Route: 048
     Dates: start: 20120301, end: 20120419

REACTIONS (7)
  - RASH ERYTHEMATOUS [None]
  - DYSURIA [None]
  - OEDEMA PERIPHERAL [None]
  - GLOSSODYNIA [None]
  - FACE OEDEMA [None]
  - SKIN EXFOLIATION [None]
  - ERYTHEMA [None]
